FAERS Safety Report 6341970-4 (Version None)
Quarter: 2009Q3

REPORT INFORMATION
  Report Type: 
  Country: None (occurrence: None)
  Receive Date: 20090904
  Receipt Date: 20090813
  Transmission Date: 20100115
  Serious: No
  Sender: FDA-Public Use
  Company Number: US-ABBOTT-09P-163-0558225-00

PATIENT
  Age: 27 Year
  Sex: Female

DRUGS (5)
  1. KALETRA [Suspect]
     Indication: HIV INFECTION
     Dosage: 800/200
     Route: 048
     Dates: start: 20081203, end: 20090107
  2. NORVIR [Suspect]
     Indication: HIV INFECTION
     Dates: start: 20090107, end: 20090225
  3. COMBIVIR [Suspect]
     Indication: DRUG USE FOR UNKNOWN INDICATION
     Dosage: 300/600MG
     Route: 048
     Dates: start: 20081203
  4. SAQUINAVIR MESILATE [Suspect]
     Indication: DRUG USE FOR UNKNOWN INDICATION
     Route: 048
     Dates: start: 20090107, end: 20090225
  5. NELFINAVIR [Suspect]
     Indication: DRUG USE FOR UNKNOWN INDICATION
     Route: 048
     Dates: start: 20090225

REACTIONS (1)
  - DRUG INTOLERANCE [None]
